FAERS Safety Report 7558243-4 (Version None)
Quarter: 2011Q2

REPORT INFORMATION
  Report Type: 
  Country: None (occurrence: None)
  Receive Date: 20110620
  Receipt Date: 20110606
  Transmission Date: 20111010
  Serious: Yes (Life-Threatening, Hospitalization)
  Sender: FDA-Public Use
  Company Number: ES-PURDUE-USA-2011-0070362

PATIENT
  Age: 53 Year
  Sex: Female

DRUGS (5)
  1. DOGMATIL [Concomitant]
     Indication: PRODUCT USED FOR UNKNOWN INDICATION
  2. FENTANILO                          /00174601/ [Concomitant]
     Indication: PRODUCT USED FOR UNKNOWN INDICATION
     Dosage: UNK
     Dates: start: 20100404, end: 20100501
  3. HYDROCHLOROTHIAZIDE [Interacting]
     Indication: PRODUCT USED FOR UNKNOWN INDICATION
     Dosage: 50 MG, QD PRN
     Route: 048
     Dates: start: 20100426, end: 20100504
  4. BETASERC                           /00141801/ [Concomitant]
     Indication: PRODUCT USED FOR UNKNOWN INDICATION
  5. TRAMADOL HCL [Suspect]
     Indication: PRODUCT USED FOR UNKNOWN INDICATION
     Dosage: 200 MG, QD PRN
     Route: 048
     Dates: start: 20100503, end: 20100504

REACTIONS (4)
  - LOSS OF CONSCIOUSNESS [None]
  - HYPOKALAEMIA [None]
  - DRUG INTERACTION [None]
  - HYPONATRAEMIA [None]
